FAERS Safety Report 8418410-4 (Version None)
Quarter: 2012Q2

REPORT INFORMATION
  Report Type: 
  Country: None (occurrence: None)
  Receive Date: 20120607
  Receipt Date: 20120601
  Transmission Date: 20120825
  Serious: Yes (Other)
  Sender: FDA-Public Use
  Company Number: US-PFIZER INC-2012106747

PATIENT
  Sex: Male
  Weight: 71.202 kg

DRUGS (3)
  1. SUTENT [Suspect]
     Indication: PANCREATIC NEUROENDOCRINE TUMOUR METASTATIC
     Dosage: 12.5 MG, 1X/DAY
     Route: 048
     Dates: start: 20120409
  2. SUTENT [Suspect]
     Dosage: 25 MG, 1X/DAY
     Route: 048
     Dates: start: 20120410
  3. SUTENT [Suspect]
     Dosage: 25 MG, 2X/DAY
     Dates: start: 20120411

REACTIONS (17)
  - APHAGIA [None]
  - GLOSSODYNIA [None]
  - WEIGHT DECREASED [None]
  - HEADACHE [None]
  - NAUSEA [None]
  - EPISTAXIS [None]
  - SENSORY DISTURBANCE [None]
  - ORAL PAIN [None]
  - EYE DISORDER [None]
  - PAIN [None]
  - BLISTER [None]
  - EXCORIATION [None]
  - DRY MOUTH [None]
  - DYSGEUSIA [None]
  - FEELING ABNORMAL [None]
  - GASTROOESOPHAGEAL REFLUX DISEASE [None]
  - BLOOD PRESSURE INCREASED [None]
